FAERS Safety Report 4763098-7 (Version None)
Quarter: 2005Q3

REPORT INFORMATION
  Report Type: 
  Country: None (occurrence: None)
  Receive Date: 20050826
  Receipt Date: 20041206
  Transmission Date: 20060218
  Serious: Yes (Death)
  Sender: FDA-Public Use
  Company Number: USA-2004-0017927

PATIENT
  Age: 54 Year
  Sex: Female
  Weight: 70.3 kg

DRUGS (6)
  1. OXYCONTIN [Suspect]
     Indication: PAIN
     Dosage: 40 MG, SEE TEXT, ORAL
     Route: 048
  2. SOMA [Concomitant]
  3. RESTORIL [Concomitant]
  4. FLEXERIL [Concomitant]
  5. XANAX [Concomitant]
  6. NORCO [Concomitant]

REACTIONS (1)
  - MULTIPLE DRUG OVERDOSE [None]
